FAERS Safety Report 9682862 (Version 3)
Quarter: 2014Q2

REPORT INFORMATION
  Report Type: Spontaneous
  Country: US (occurrence: US)
  Receive Date: 20131112
  Receipt Date: 20140414
  Transmission Date: 20141212
  Serious: Yes (Hospitalization)
  Sender: FDA-Public Use
  Company Number: US-BAYER-2013-135405

PATIENT
  Age: 27 Year
  Sex: Female
  Weight: 65.76 kg

DRUGS (7)
  1. YASMIN [Suspect]
     Dosage: UNK
     Dates: start: 2001, end: 2003
  2. OCELLA [Suspect]
     Dosage: UNK
     Dates: start: 201004, end: 201103
  3. VALIUM [Concomitant]
     Dosage: UNK UNK, PRN
  4. ORTHO TRI-CYCLEN LO [Concomitant]
  5. VITAMIN D [Concomitant]
  6. MULTIVITAMIN [Concomitant]
  7. FISH OIL [Concomitant]
     Route: 048

REACTIONS (7)
  - Pulmonary embolism [Recovered/Resolved]
  - Pain [Recovered/Resolved]
  - Injury [Recovered/Resolved]
  - Emotional distress [None]
  - General physical health deterioration [Recovered/Resolved]
  - Anxiety [None]
  - Pain [None]
